FAERS Safety Report 7963870-6 (Version None)
Quarter: 2011Q4

REPORT INFORMATION
  Report Type: 
  Country: None (occurrence: None)
  Receive Date: 20111208
  Receipt Date: 20111028
  Transmission Date: 20120403
  Serious: No
  Sender: FDA-Public Use
  Company Number: US-BAYER-2011-106155

PATIENT
  Age: 60 Year
  Sex: Male
  Weight: 90.703 kg

DRUGS (3)
  1. OSTEO BI-FLEX [Concomitant]
  2. ALEVE (CAPLET) [Suspect]
     Indication: ARTHRITIS
     Dosage: 2 TABS AS NEEDED
     Route: 048
     Dates: start: 20080101
  3. ALLOPURINOL [Concomitant]

REACTIONS (2)
  - OROPHARYNGEAL PAIN [None]
  - FEELING HOT [None]
